FAERS Safety Report 6822403-8 (Version None)
Quarter: 2010Q3

REPORT INFORMATION
  Report Type: 
  Country: None (occurrence: None)
  Receive Date: 20100708
  Receipt Date: 20100701
  Transmission Date: 20110219
  Serious: Yes (Death, Other)
  Sender: FDA-Public Use
  Company Number: PHHY2010JP41324

PATIENT
  Age: 68 Year
  Sex: Male

DRUGS (3)
  1. EXJADE [Suspect]
     Indication: MYELODYSPLASTIC SYNDROME
     Dosage: UNK
     Route: 048
  2. CHEMOTHERAPEUTICS NOS [Concomitant]
     Indication: MYELODYSPLASTIC SYNDROME
  3. BLOOD TRANSFUSION, AUXILIARY PRODUCTS [Concomitant]

REACTIONS (5)
  - CARDIAC ARREST [None]
  - LUNG INFECTION [None]
  - MUCORMYCOSIS [None]
  - PNEUMONIA [None]
  - PYREXIA [None]
